FAERS Safety Report 7096930-5 (Version None)
Quarter: 2010Q4

REPORT INFORMATION
  Report Type: 
  Country: None (occurrence: None)
  Receive Date: 20101111
  Receipt Date: 20100301
  Transmission Date: 20110411
  Serious: No
  Sender: FDA-Public Use
  Company Number: US-KINGPHARMUSA00001-K201000235

PATIENT
  Age: 76 Year
  Sex: Female
  Weight: 77.098 kg

DRUGS (2)
  1. FLECTOR [Suspect]
     Indication: ARTHRALGIA
     Dosage: 1 PATCH, EVERY 12 HOURS
     Route: 061
     Dates: start: 20100223, end: 20100227
  2. CARVEDILOL [Concomitant]
     Indication: HYPERTENSION
     Dosage: 6.25 MG, BID

REACTIONS (9)
  - CHEST DISCOMFORT [None]
  - DEHYDRATION [None]
  - FATIGUE [None]
  - FLUID RETENTION [None]
  - HYPERSOMNIA [None]
  - NASOPHARYNGITIS [None]
  - POLLAKIURIA [None]
  - URINE OUTPUT DECREASED [None]
  - WHEEZING [None]
